FAERS Safety Report 4878861-1 (Version None)
Quarter: 2006Q1

REPORT INFORMATION
  Report Type: 
  Country: None (occurrence: None)
  Receive Date: 20060110
  Receipt Date: 20060110
  Transmission Date: 20060701
  Serious: Yes (Other)
  Sender: FDA-Public Use
  Company Number: None

PATIENT
  Sex: Female
  Weight: 73 kg

DRUGS (1)
  1. LEVOTHYROXIN [Suspect]
     Indication: AUTOIMMUNE THYROIDITIS
     Dosage: 125  MICROGRAM DAILY PO
     Route: 048
     Dates: start: 20031001

REACTIONS (2)
  - HORMONE LEVEL ABNORMAL [None]
  - THERAPEUTIC RESPONSE UNEXPECTED WITH DRUG SUBSTITUTION [None]
